FAERS Safety Report 5362020-2 (Version None)
Quarter: 2007Q2

REPORT INFORMATION
  Report Type: 
  Country: None (occurrence: None)
  Receive Date: 20070615
  Receipt Date: 20070611
  Transmission Date: 20071010
  Serious: Yes (Other)
  Sender: FDA-Public Use
  Company Number: TPA2007A01049

PATIENT
  Sex: Female

DRUGS (1)
  1. ROZEREM [Suspect]
     Indication: INSOMNIA
     Dosage: 8 MG, HS,PER ORAL
     Route: 048
     Dates: start: 20070316, end: 20070321

REACTIONS (3)
  - BLOOD PRESSURE DECREASED [None]
  - SOMNOLENCE [None]
  - SUICIDAL IDEATION [None]
